FAERS Safety Report 10960063 (Version 1)
Quarter: 2015Q1

REPORT INFORMATION
  Report Type: Spontaneous
  Country: US (occurrence: None)
  Receive Date: 20150325
  Receipt Date: 20150325
  Transmission Date: 20150721
  Serious: Yes (Hospitalization, Disabling)
  Sender: FDA-Public Use
  Company Number: US-H14001-15-00481

PATIENT
  Sex: Male

DRUGS (3)
  1. TESTOSTERONE CYPIONATE. [Suspect]
     Active Substance: TESTOSTERONE CYPIONATE
     Indication: BLOOD TESTOSTERONE DECREASED
     Dosage: 200 MILLIGRAM/MILLILITERS, ROUGHLY EVERY ONE TO THREE WEEKS
     Route: 030
  2. DEPO-TESTOSTERONE [Suspect]
     Active Substance: TESTOSTERONE CYPIONATE
     Indication: BLOOD TESTOSTERONE DECREASED
     Dosage: 200 MILLIGRAM/MILLILITERS, ROUGHLY EVERY ONE TO THREE WEEKS
     Route: 030
  3. HYPERTENSION MEDICATIONS (ANTIHYPERTENSIVES) [Concomitant]

REACTIONS (16)
  - Scar [None]
  - Economic problem [None]
  - Pulmonary embolism [None]
  - Deep vein thrombosis [None]
  - Oedema peripheral [None]
  - Ventricular hypokinesia [None]
  - Heart rate increased [None]
  - Inferior vena caval occlusion [None]
  - Blood urine present [None]
  - Anxiety [None]
  - Deformity [None]
  - Fatigue [None]
  - Hypertension [None]
  - Asthenia [None]
  - Unevaluable event [None]
  - Dyspnoea [None]

NARRATIVE: CASE EVENT DATE: 2014
